FAERS Safety Report 9890203 (Version 1)
Quarter: 2014Q1

REPORT INFORMATION
  Report Type: Spontaneous
  Country: US (occurrence: US)
  Receive Date: 20140212
  Receipt Date: 20140212
  Transmission Date: 20141002
  Serious: No
  Sender: FDA-Public Use
  Company Number: US-BIOGENIDEC-2014BI011826

PATIENT
  Sex: Male

DRUGS (11)
  1. TECFIDERA [Suspect]
     Indication: MULTIPLE SCLEROSIS
     Route: 048
     Dates: start: 201307
  2. ELMIRON [Concomitant]
  3. TOVIAZ ER [Concomitant]
  4. CLONAZEPAM [Concomitant]
  5. NABUMETONE [Concomitant]
  6. NITROFURANTOIN MCR [Concomitant]
  7. MIRAPEX [Concomitant]
  8. BACLOFEN [Concomitant]
  9. ZANAFLEX [Concomitant]
  10. VITAMIN D3 [Concomitant]
  11. CALCIUM + D [Concomitant]

REACTIONS (4)
  - Gastric disorder [Not Recovered/Not Resolved]
  - Faeces discoloured [Not Recovered/Not Resolved]
  - Gastrointestinal disorder [Not Recovered/Not Resolved]
  - Nausea [Not Recovered/Not Resolved]
